FAERS Safety Report 13697550 (Version 1)
Quarter: 2017Q2

REPORT INFORMATION
  Report Type: Spontaneous
  Country: CN (occurrence: CN)
  Receive Date: 20170628
  Receipt Date: 20170628
  Transmission Date: 20170830
  Serious: Yes (Hospitalization)
  Sender: FDA-Public Use
  Company Number: CN-PFIZER INC-2017277539

PATIENT
  Sex: Male

DRUGS (1)
  1. XYNTHA [Suspect]
     Active Substance: ANTIHEMOPHILIC FACTOR, HUMAN RECOMBINANT RESIDUES 743-1636 DELETED
     Dosage: 1000 IU - 1500 IU, UNK
     Dates: start: 201608

REACTIONS (2)
  - Intra-abdominal haemorrhage [Unknown]
  - Appendicitis [Unknown]

NARRATIVE: CASE EVENT DATE: 20170623
